FAERS Safety Report 9260217 (Version 1)
Quarter: 2013Q2

REPORT INFORMATION
  Report Type: Spontaneous
  Country: US (occurrence: US)
  Receive Date: 20130429
  Receipt Date: 20130429
  Transmission Date: 20140414
  Serious: No
  Sender: FDA-Public Use
  Company Number: US-PFIZER INC-2013133580

PATIENT
  Age: 76 Year
  Sex: Male
  Weight: 90.7 kg

DRUGS (9)
  1. CHANTIX [Suspect]
     Indication: SMOKING CESSATION THERAPY
     Dosage: UNK, 2X/DAY
     Dates: start: 2012
  2. CHANTIX [Suspect]
     Dosage: UNK, 1X/DAY
  3. CLOPIDOGREL BISULFATE [Concomitant]
     Indication: ANTICOAGULANT THERAPY
     Dosage: 75 MG DAILY
  4. LISINOPRIL [Concomitant]
     Dosage: 10 MG DAILY
  5. SIMVASTATIN [Concomitant]
     Dosage: 80 MG DAILY
  6. NADOLOL [Concomitant]
     Indication: TREMOR
     Dosage: 40 MG, 2X/DAY
  7. ATORVASTATIN [Concomitant]
     Dosage: 40 MG DAILY
  8. ASPIRIN [Concomitant]
     Dosage: 81 MG DAILY
  9. VITAMIN D [Concomitant]
     Dosage: 2000 IU, UNK

REACTIONS (2)
  - Expired drug administered [Unknown]
  - Abnormal dreams [Unknown]
